FAERS Safety Report 5017653-X (Version None)
Quarter: 2006Q2

REPORT INFORMATION
  Report Type: 
  Country: None (occurrence: None)
  Receive Date: 20060605
  Receipt Date: 20050826
  Transmission Date: 20061013
  Serious: Yes (Hospitalization)
  Sender: FDA-Public Use
  Company Number: DE-ROCHE-415672

PATIENT
  Age: 75 Year
  Sex: Female

DRUGS (6)
  1. INTERFERON ALFA-2A [Suspect]
     Indication: METASTATIC MALIGNANT MELANOMA
     Dosage: DOSING FREQUENCY NOT REPORTED. ADMINISTERED ON DAYS 11 AND 18 IN A CYCLE.
     Route: 058
     Dates: start: 20050315
  2. DACARBAZINE [Suspect]
     Indication: METASTATIC MALIGNANT MELANOMA
     Dosage: FREQUENCY OF DOSING NOT REPORTED. ADMINISTERED ON DAY 1 OF A CYCLE. ADMINISTERED 1384MG ON 17MAR200+
     Route: 042
     Dates: start: 20050315
  3. NORMALIP [Concomitant]
     Indication: HYPERCHOLESTEROLAEMIA
  4. ASPIRIN [Concomitant]
     Indication: MYOCARDIAL INFARCTION
  5. DILTIAZEM [Concomitant]
     Indication: MYOCARDIAL INFARCTION
  6. THYREOTOM [Concomitant]
     Indication: HYPERCHOLESTEROLAEMIA
     Dosage: CLARIFIED AS THYREOTOM FORTE

REACTIONS (3)
  - HAEMORRHAGE [None]
  - PANCYTOPENIA [None]
  - PYREXIA [None]
